FAERS Safety Report 8353097-0 (Version None)
Quarter: 2012Q2

REPORT INFORMATION
  Report Type: 
  Country: None (occurrence: None)
  Receive Date: 20120511
  Receipt Date: 20120508
  Transmission Date: 20120825
  Serious: Yes (Hospitalization)
  Sender: FDA-Public Use
  Company Number: IT-SANOFI-AVENTIS-2012SA029762

PATIENT
  Age: 82 Year
  Sex: Male

DRUGS (7)
  1. RAMIPRIL [Suspect]
     Route: 048
     Dates: start: 20110701, end: 20120330
  2. LASIX [Suspect]
     Route: 048
     Dates: start: 20110701, end: 20120330
  3. ALDACTONE [Suspect]
     Route: 048
     Dates: start: 20110701, end: 20120322
  4. ASPIRIN [Concomitant]
  5. ATORVASTATIN CALCIUM [Concomitant]
  6. PLAVIX [Concomitant]
  7. RANITIDINE [Concomitant]

REACTIONS (2)
  - HYPONATRAEMIA [None]
  - HYPERKALAEMIA [None]
